FAERS Safety Report 15191398 (Version 2)
Quarter: 2018Q4

REPORT INFORMATION
  Report Type: Report from Study
  Country: US (occurrence: US)
  Receive Date: 20180724
  Receipt Date: 20181015
  Transmission Date: 20190204
  Serious: Yes (Other)
  Sender: FDA-Public Use
  Company Number: US-AMGEN-USASL2018026163

PATIENT
  Age: 65 Year
  Sex: Male
  Weight: 80.73 kg

DRUGS (3)
  1. POMALYST [Suspect]
     Active Substance: POMALIDOMIDE
     Indication: PLASMA CELL MYELOMA
     Dosage: UNK
     Route: 065
  2. KYPROLIS [Suspect]
     Active Substance: CARFILZOMIB
     Dosage: 27 MG/M2 (56 MG), UNK
     Route: 065
  3. KYPROLIS [Suspect]
     Active Substance: CARFILZOMIB
     Indication: PLASMA CELL MYELOMA
     Dosage: 27 MG/M2 (55 MG), UNK
     Route: 065

REACTIONS (10)
  - Asthenia [Unknown]
  - Off label use [Unknown]
  - Feeling abnormal [Unknown]
  - Plasma cell myeloma [Unknown]
  - Muscle spasms [Not Recovered/Not Resolved]
  - Weight fluctuation [Unknown]
  - Arthritis [Not Recovered/Not Resolved]
  - Platelet count abnormal [Unknown]
  - Blood test abnormal [Unknown]
  - Oropharyngeal pain [Unknown]
